FAERS Safety Report 8877457 (Version 2)
Quarter: 2013Q1

REPORT INFORMATION
  Report Type: Spontaneous
  Country: US (occurrence: None)
  Receive Date: 20121026
  Receipt Date: 20121107
  Transmission Date: 20140127
  Serious: Yes (Hospitalization)
  Sender: FDA-Public Use
  Company Number: 2012ST000703

PATIENT
  Age: 65 Year
  Sex: Male
  Weight: 54 kg

DRUGS (6)
  1. MATULANE [Suspect]
     Indication: HODGKIN^S DISEASE
     Route: 048
     Dates: start: 20120606
  2. BLEOMYCIN [Suspect]
     Indication: HODGKIN^S DISEASE
     Route: 042
     Dates: start: 2012
  3. DOXORUBICIN [Concomitant]
  4. CYTOXAN [Concomitant]
  5. PREDNISONE [Concomitant]
  6. VINBLASTINE [Concomitant]

REACTIONS (3)
  - Lung infiltration [None]
  - Toxicity to various agents [None]
  - Candida pneumonia [None]
